FAERS Safety Report 5571768-6 (Version None)
Quarter: 2007Q4

REPORT INFORMATION
  Report Type: 
  Country: None (occurrence: None)
  Receive Date: 20071221
  Receipt Date: 20071219
  Transmission Date: 20080405
  Serious: Yes (Other)
  Sender: FDA-Public Use
  Company Number: B0498265A

PATIENT
  Age: 45 Year
  Sex: Female
  Weight: 51 kg

DRUGS (16)
  1. PAXIL [Suspect]
     Indication: PANIC DISORDER
     Dosage: 20MG PER DAY
     Route: 048
     Dates: start: 20021021, end: 20021027
  2. PAXIL [Suspect]
     Dosage: 10MG PER DAY
     Route: 048
     Dates: start: 20021028, end: 20021110
  3. PAXIL [Suspect]
     Dosage: 5MG PER DAY
     Route: 048
     Dates: start: 20021111, end: 20021124
  4. PAXIL [Suspect]
     Dosage: 10MG PER DAY
     Route: 048
     Dates: start: 20021125, end: 20031026
  5. PAXIL [Suspect]
     Dosage: 20MG PER DAY
     Route: 048
     Dates: start: 20031027, end: 20040222
  6. PAXIL [Suspect]
     Dosage: 10MG PER DAY
     Route: 048
     Dates: start: 20040223, end: 20070712
  7. PAXIL [Suspect]
     Dosage: 20MG PER DAY
     Route: 048
     Dates: start: 20070713, end: 20071101
  8. PAXIL [Suspect]
     Dosage: 10MG PER DAY
     Route: 048
     Dates: start: 20071106, end: 20071110
  9. TOLEDOMIN [Suspect]
     Indication: DEPRESSION
     Dosage: 25MG PER DAY
     Route: 048
     Dates: start: 20070810, end: 20070801
  10. TOLEDOMIN [Suspect]
     Dosage: 25MG PER DAY
     Route: 048
     Dates: start: 20071105, end: 20071105
  11. MYSLEE [Concomitant]
     Indication: INSOMNIA
     Dosage: 5MG PER DAY
     Route: 048
     Dates: start: 20050621, end: 20071102
  12. DEZOLAM [Concomitant]
     Indication: HEADACHE
     Dosage: .5MG PER DAY
     Route: 048
     Dates: start: 20060828, end: 20070218
  13. DEZOLAM [Concomitant]
     Dosage: .5MG TWICE PER DAY
     Route: 048
     Dates: start: 20070416, end: 20070610
  14. SELBEX [Concomitant]
     Indication: STOMACH DISCOMFORT
     Dosage: 50MG THREE TIMES PER DAY
     Route: 048
     Dates: start: 20071005
  15. ACINON [Concomitant]
     Indication: STOMACH DISCOMFORT
     Dosage: 75MG TWICE PER DAY
     Route: 048
     Dates: start: 20071005
  16. VITAMIN PREPARATION [Concomitant]
     Route: 065

REACTIONS (6)
  - DIZZINESS [None]
  - DRUG INEFFECTIVE [None]
  - DRUG WITHDRAWAL SYNDROME [None]
  - HEADACHE [None]
  - STOMACH DISCOMFORT [None]
  - VOMITING [None]
